FAERS Safety Report 5531597-6 (Version None)
Quarter: 2007Q4

REPORT INFORMATION
  Report Type: 
  Country: None (occurrence: None)
  Receive Date: 20071203
  Receipt Date: 20071127
  Transmission Date: 20080405
  Serious: Yes (Other)
  Sender: FDA-Public Use
  Company Number: PHBS2007BR20079

PATIENT
  Age: 78 Year
  Sex: Female
  Weight: 54 kg

DRUGS (3)
  1. DIOVAN HCT [Suspect]
     Indication: HYPERTENSION
     Dosage: VALS 80 / HCT 12.5 MG/DAY
     Dates: start: 20061201
  2. FRONTAL [Concomitant]
     Indication: TENSION
     Dosage: 5 MG, QD
     Route: 048
  3. ACETYLSALICYLIC ACID SRT [Concomitant]
     Dosage: 100 MG, QD
     Route: 048
     Dates: start: 20030101

REACTIONS (3)
  - BLOOD URINE PRESENT [None]
  - NASOPHARYNGITIS [None]
  - SNEEZING [None]
